FAERS Safety Report 18578259 (Version 2)
Quarter: 2020Q4

REPORT INFORMATION
  Report Type: Report from Study
  Country: None (occurrence: US)
  Receive Date: 20201204
  Receipt Date: 20201208
  Transmission Date: 20210114
  Serious: Yes (Other)
  Sender: FDA-Public Use
  Company Number: US-ABBVIE-20K-163-3671245-00

PATIENT
  Sex: Female

DRUGS (2)
  1. HUMIRA [Suspect]
     Active Substance: ADALIMUMAB
     Indication: PRODUCT USED FOR UNKNOWN INDICATION
     Route: 058
     Dates: start: 2014, end: 2020
  2. METHOTREXATE. [Concomitant]
     Active Substance: METHOTREXATE
     Indication: PRODUCT USED FOR UNKNOWN INDICATION

REACTIONS (18)
  - Rheumatoid arthritis [Unknown]
  - Diabetic neuropathy [Unknown]
  - Hypoaesthesia [Unknown]
  - Bone disorder [Unknown]
  - Loss of personal independence in daily activities [Unknown]
  - General physical health deterioration [Unknown]
  - Impaired healing [Unknown]
  - Implantation complication [Unknown]
  - Presyncope [Unknown]
  - Osteopenia [Unknown]
  - Pain [Unknown]
  - Headache [Unknown]
  - Lisfranc fracture [Unknown]
  - Foot operation [Unknown]
  - Toe amputation [Unknown]
  - Magnetic resonance imaging brain abnormal [Unknown]
  - Osteoporosis [Unknown]
  - Nausea [Unknown]

NARRATIVE: CASE EVENT DATE: 20191111
